FAERS Safety Report 15058446 (Version 1)
Quarter: 2018Q2

REPORT INFORMATION
  Report Type: Report from Study
  Country: ES (occurrence: ES)
  Receive Date: 20180625
  Receipt Date: 20180625
  Transmission Date: 20180711
  Serious: Yes (Hospitalization)
  Sender: FDA-Public Use
  Company Number: ES-CONCORDIA PHARMACEUTICALS INC.-E2B_00012855

PATIENT
  Age: 71 Year
  Sex: Female

DRUGS (6)
  1. ADIRO 100 MG COMPRIMIDOS GASTRORRESISTENTES EFG , 30 COMPRIMIDOS [Concomitant]
     Active Substance: ASPIRIN
     Route: 048
     Dates: start: 201401
  2. ATORVASTATINA (7400A) [Concomitant]
     Active Substance: ATORVASTATIN
     Indication: DYSLIPIDAEMIA
     Route: 048
     Dates: start: 201401
  3. ALDOCUMAR 1 MG COMPRIMIDOS, 40 COMPRIMIDOS [Concomitant]
     Active Substance: WARFARIN SODIUM
     Route: 048
     Dates: start: 20151112
  4. DIGOXIN. [Suspect]
     Active Substance: DIGOXIN
     Indication: ATRIAL FLUTTER
     Route: 048
     Dates: start: 20161112, end: 20161128
  5. COROPRES 6,25 MG COMPRIMIDOS, 28 COMPRIMIDOS [Concomitant]
     Route: 048
     Dates: start: 201010, end: 20161202
  6. PREDNISONA (886A) [Concomitant]
     Active Substance: PREDNISONE
     Route: 048
     Dates: start: 201203

REACTIONS (2)
  - Toxicity to various agents [Recovered/Resolved]
  - Asthenia [Recovered/Resolved]

NARRATIVE: CASE EVENT DATE: 201611
